FAERS Safety Report 5868338-9 (Version None)
Quarter: 2008Q3

REPORT INFORMATION
  Report Type: 
  Country: None (occurrence: None)
  Receive Date: 20080903
  Receipt Date: 20080828
  Transmission Date: 20090109
  Serious: Yes (Hospitalization)
  Sender: FDA-Public Use
  Company Number: FR-WYE-G02074308

PATIENT
  Sex: Female

DRUGS (14)
  1. RAPAMUNE [Suspect]
     Indication: PROPHYLAXIS AGAINST TRANSPLANT REJECTION
     Dosage: 2 MG STRENGTH; FREQUENCY UNSPECIFIED
     Route: 048
     Dates: start: 20040202
  2. CACIT VITAMINE D3 [Concomitant]
     Dosage: UNKNOWN
     Route: 048
  3. IRBESARTAN [Concomitant]
     Dosage: UNKNOWN
     Route: 048
  4. AMLOR [Concomitant]
     Dosage: UNKNOWN
     Route: 048
  5. DETENSIEL [Concomitant]
     Dosage: UNKNOWN
     Route: 048
  6. MONICOR L.P. [Concomitant]
     Dosage: UNKNOWN
     Route: 048
  7. HYPERIUM [Concomitant]
     Dosage: UNKNOWN
     Route: 048
  8. LANTUS [Concomitant]
     Dosage: UNKNOWN
  9. LASIX [Concomitant]
     Dosage: UNKNOWN
  10. ASPIRIN [Concomitant]
     Dosage: UNKNOWN
  11. TAHOR [Concomitant]
     Dosage: UNKNOWN
     Route: 048
  12. PLAVIX [Concomitant]
     Dosage: UNKNOWN
     Route: 048
  13. PROGRAF [Concomitant]
     Dosage: UNKNOWN
  14. SODIUM BICARBONATE [Concomitant]
     Dosage: UNKNOWN

REACTIONS (6)
  - DEHYDRATION [None]
  - DIARRHOEA [None]
  - GENERAL PHYSICAL HEALTH DETERIORATION [None]
  - HYPERKALAEMIA [None]
  - PYREXIA [None]
  - RENAL FAILURE [None]
